FAERS Safety Report 10076034 (Version 2)
Quarter: 2014Q2

REPORT INFORMATION
  Report Type: Spontaneous
  Country: JP (occurrence: JP)
  Receive Date: 20140414
  Receipt Date: 20140414
  Transmission Date: 20141212
  Serious: Yes (Other)
  Sender: FDA-Public Use
  Company Number: JP-PFIZER INC-2014086194

PATIENT
  Age: 52 Year
  Sex: Male

DRUGS (3)
  1. CELECOX [Suspect]
     Indication: OSTEOARTHRITIS
     Dosage: 200 MG (STRENGTH 100MG), DAILY
     Route: 048
     Dates: start: 20140304, end: 201403
  2. CLARITH [Concomitant]
     Dosage: UNK
     Route: 048
  3. CODEINE PHOSPHATE [Concomitant]
     Dosage: UNK
     Route: 048

REACTIONS (3)
  - Rash generalised [Recovered/Resolved]
  - Drug eruption [Recovered/Resolved]
  - Eczema [Recovered/Resolved]
